FAERS Safety Report 6972707-3 (Version None)
Quarter: 2010Q3

REPORT INFORMATION
  Report Type: 
  Country: None (occurrence: None)
  Receive Date: 20100909
  Receipt Date: 20090827
  Transmission Date: 20110219
  Serious: No
  Sender: FDA-Public Use
  Company Number: US-KINGPHARMUSA00001-K200901064

PATIENT
  Age: 53 Year
  Sex: Female
  Weight: 88.435 kg

DRUGS (6)
  1. CYTOMEL [Suspect]
     Indication: THYROIDECTOMY
     Dosage: 25 MCG, BID
     Route: 048
     Dates: start: 20080301
  2. SPIRONOLACTONE [Concomitant]
     Indication: FLUID RETENTION
     Dosage: UNK
     Route: 048
     Dates: start: 20090301
  3. LASIX [Concomitant]
     Indication: FLUID RETENTION
     Dosage: UNK
     Route: 048
     Dates: start: 20090301
  4. PERCOCET [Concomitant]
     Indication: PAIN
     Dosage: UNK
     Route: 048
  5. PERCOCET [Concomitant]
     Indication: LYME DISEASE
  6. SYNTHROID [Concomitant]
     Indication: THYROID OPERATION
     Dosage: 20 MCG, QD
     Route: 048
     Dates: start: 20090101

REACTIONS (5)
  - DRUG INEFFECTIVE [None]
  - INTENTIONAL OVERDOSE [None]
  - PAIN [None]
  - PALPITATIONS [None]
  - TRI-IODOTHYRONINE INCREASED [None]
